FAERS Safety Report 17051903 (Version 1)
Quarter: 2019Q4

REPORT INFORMATION
  Report Type: Spontaneous
  Country: US (occurrence: US)
  Receive Date: 20191021
  Receipt Date: 20191021
  Transmission Date: 20200122
  Serious: Yes (Hospitalization)
  Sender: FDA-Public Use
  Company Number: None

PATIENT
  Age: 26 Year
  Sex: Male

DRUGS (9)
  1. STELARA [Suspect]
     Active Substance: USTEKINUMAB
     Indication: CROHN^S DISEASE
     Dosage: ?          OTHER FREQUENCY:Q8WKS;?
     Route: 058
     Dates: start: 20181120
  2. LITHIUM CARB [Concomitant]
     Active Substance: LITHIUM CARBONATE
  3. DICYCLOMINE [Concomitant]
     Active Substance: DICYCLOMINE HYDROCHLORIDE
  4. ONDANSETRON [Concomitant]
     Active Substance: ONDANSETRON
  5. VRAYLAR [Concomitant]
     Active Substance: CARIPRAZINE
  6. BENZTROPINE. [Concomitant]
     Active Substance: BENZTROPINE
  7. TRIHEXYPHEN [Concomitant]
  8. VITAMIN D [Concomitant]
     Active Substance: VITAMIN D NOS
  9. PROPRANOLOL [Concomitant]
     Active Substance: PROPRANOLOL HYDROCHLORIDE

REACTIONS (2)
  - Suicide attempt [None]
  - Product distribution issue [None]
